FAERS Safety Report 4874706-4 (Version None)
Quarter: 2006Q1

REPORT INFORMATION
  Report Type: 
  Country: None (occurrence: None)
  Receive Date: 20060106
  Receipt Date: 20050912
  Transmission Date: 20060701
  Serious: Yes (Hospitalization, Disabling, Other)
  Sender: FDA-Public Use
  Company Number: US-MERCK-0509USA01552

PATIENT
  Age: 55 Year
  Sex: Male
  Weight: 80 kg

DRUGS (18)
  1. VIOXX [Suspect]
     Indication: OSTEOARTHRITIS
     Route: 048
     Dates: start: 19991003, end: 20020829
  2. PREVACID [Concomitant]
     Route: 065
  3. HYDROCODONE BITARTRATE + ACETAMINOPHEN [Concomitant]
     Route: 065
  4. PROZAC [Concomitant]
     Route: 065
     Dates: start: 19991201, end: 20010501
  5. TEMAZEPAM [Concomitant]
     Route: 065
  6. SONATA [Concomitant]
     Route: 065
  7. TOPROL-XL [Concomitant]
     Route: 065
  8. XANAX [Concomitant]
     Route: 065
     Dates: start: 20000401
  9. NITRO [Concomitant]
     Route: 065
  10. OXYCODONE [Concomitant]
     Route: 065
  11. PRILOSEC [Concomitant]
     Route: 048
  12. LORAZEPAM [Concomitant]
     Route: 065
  13. ZOLOFT [Concomitant]
     Route: 065
     Dates: start: 20010601
  14. ZYPREXA [Concomitant]
     Route: 065
     Dates: start: 20010901, end: 20030801
  15. ANEMAGEN [Concomitant]
     Route: 065
  16. POTASSIUM CHLORIDE [Concomitant]
     Route: 065
  17. FUROSEMIDE [Concomitant]
     Route: 065
  18. METRONIDAZOLE [Concomitant]
     Route: 065

REACTIONS (62)
  - ABDOMINAL DISCOMFORT [None]
  - ABDOMINAL HERNIA [None]
  - ABDOMINAL HERNIA REPAIR [None]
  - ABDOMINAL PAIN [None]
  - ACTINIC KERATOSIS [None]
  - ACUTE PULMONARY OEDEMA [None]
  - ACUTE RESPIRATORY FAILURE [None]
  - ADVERSE EVENT [None]
  - ANAEMIA [None]
  - ANAEMIA POSTOPERATIVE [None]
  - ANXIETY [None]
  - ASTHENIA [None]
  - ATRIOVENTRICULAR BLOCK COMPLETE [None]
  - BACK INJURY [None]
  - BLINDNESS UNILATERAL [None]
  - BUNDLE BRANCH BLOCK LEFT [None]
  - CARDIAC DISORDER [None]
  - CARDIAC FAILURE CONGESTIVE [None]
  - CAROTID ARTERY STENOSIS [None]
  - CAROTID BRUIT [None]
  - CEREBROVASCULAR ACCIDENT [None]
  - CHEST PAIN [None]
  - CHRONIC OBSTRUCTIVE PULMONARY DISEASE [None]
  - CORONARY ARTERY DISEASE [None]
  - CORONARY ARTERY STENOSIS [None]
  - DEPRESSION [None]
  - DEPRESSION SUICIDAL [None]
  - DIZZINESS [None]
  - DYSPNOEA [None]
  - EMBOLIC STROKE [None]
  - FATIGUE [None]
  - FUNGAL RASH [None]
  - GASTRIC ULCER [None]
  - GASTROINTESTINAL HAEMORRHAGE [None]
  - GASTROOESOPHAGEAL REFLUX DISEASE [None]
  - HAEMORRHAGE [None]
  - HAEMORRHOIDS [None]
  - HYPERCHOLESTEROLAEMIA [None]
  - HYPERTENSION [None]
  - HYPOTENSION [None]
  - IMPAIRED HEALING [None]
  - INTERNATIONAL NORMALISED RATIO INCREASED [None]
  - IRON DEFICIENCY ANAEMIA [None]
  - MEMORY IMPAIRMENT [None]
  - MUSCLE SPASMS [None]
  - MYOCARDIAL INFARCTION [None]
  - NAUSEA [None]
  - NECK PAIN [None]
  - POST PROCEDURAL COMPLICATION [None]
  - POSTOPERATIVE ILEUS [None]
  - PULMONARY OEDEMA [None]
  - RASH PRURITIC [None]
  - ROAD TRAFFIC ACCIDENT [None]
  - SEPSIS [None]
  - SLEEP APNOEA SYNDROME [None]
  - SLEEP DISORDER [None]
  - SUICIDAL IDEATION [None]
  - TRANSIENT ISCHAEMIC ATTACK [None]
  - VERTEBRAL ARTERY STENOSIS [None]
  - VISION BLURRED [None]
  - WOUND DRAINAGE [None]
  - WOUND INFECTION STAPHYLOCOCCAL [None]
